FAERS Safety Report 8830779 (Version 2)
Quarter: 2013Q1

REPORT INFORMATION
  Report Type: Spontaneous
  Country: US (occurrence: US)
  Receive Date: 20121009
  Receipt Date: 20130128
  Transmission Date: 20140127
  Serious: No
  Sender: FDA-Public Use
  Company Number: US-009507513-1210USA003373

PATIENT
  Sex: Female
  Weight: 66.67 kg

DRUGS (6)
  1. MIRALAX [Suspect]
     Indication: PRODUCT USED FOR UNKNOWN INDICATION
     Dosage: 17 G, QD
     Route: 048
     Dates: start: 2010
  2. MIRALAX [Suspect]
     Indication: MEDICAL OBSERVATION
  3. METOPROLOL [Concomitant]
     Indication: HEART RATE IRREGULAR
     Dosage: 1 DF, QD
     Dates: start: 2011
  4. CALCIUM (UNSPECIFIED) (+) VITAMIN D (UNSPECIFIED) [Concomitant]
     Indication: PRODUCT USED FOR UNKNOWN INDICATION
     Dosage: 600 MG, QD
  5. OMEGA-3 MARINE TRIGLYCERIDES [Concomitant]
     Indication: PRODUCT USED FOR UNKNOWN INDICATION
     Dosage: 2 DF, QD
  6. CHOLECALCIFEROL [Concomitant]
     Indication: PRODUCT USED FOR UNKNOWN INDICATION
     Dosage: 1 DF, QD

REACTIONS (3)
  - Pain in extremity [Unknown]
  - Incorrect drug administration duration [Unknown]
  - Underdose [Unknown]
